FAERS Safety Report 8001890-6 (Version None)
Quarter: 2011Q4

REPORT INFORMATION
  Report Type: 
  Country: None (occurrence: None)
  Receive Date: 20111222
  Receipt Date: 20111216
  Transmission Date: 20120403
  Serious: Yes (Death, Hospitalization, Other)
  Sender: FDA-Public Use
  Company Number: ES-ROXANE LABORATORIES, INC.-2011-RO-01822RO

PATIENT
  Age: 33 Year
  Sex: Female

DRUGS (6)
  1. VESANOID [Suspect]
     Indication: ACUTE PROMYELOCYTIC LEUKAEMIA
     Route: 048
  2. DEXAMETHASONE TABLETS USP, 1.5 MG [Suspect]
     Indication: ACUTE PROMYELOCYTIC LEUKAEMIA
  3. POSACONAZOLE [Suspect]
     Indication: ANTIFUNGAL PROPHYLAXIS
  4. AMPHOTERICIN B [Suspect]
     Indication: GASTROINTESTINAL TOXICITY
  5. FLUCONAZOLE [Suspect]
  6. IDARUBICIN HCL [Suspect]
     Indication: ACUTE PROMYELOCYTIC LEUKAEMIA
     Route: 042

REACTIONS (7)
  - SEPTIC SHOCK [None]
  - RESPIRATORY DISTRESS [None]
  - METABOLIC ACIDOSIS [None]
  - MULTI-ORGAN FAILURE [None]
  - HEPATOTOXICITY [None]
  - ENTEROBACTER INFECTION [None]
  - GASTROINTESTINAL TOXICITY [None]
